FAERS Safety Report 9528753 (Version 4)
Quarter: 2013Q4

REPORT INFORMATION
  Report Type: Report from Study
  Country: US (occurrence: US)
  Receive Date: 20130917
  Receipt Date: 20131125
  Transmission Date: 20140711
  Serious: Yes (Hospitalization, Other)
  Sender: FDA-Public Use
  Company Number: US-ABBVIE-13P-163-1147235-00

PATIENT
  Age: 24 Year
  Sex: Female

DRUGS (4)
  1. HUMIRA [Suspect]
     Indication: CROHN^S DISEASE
     Dates: start: 201008
  2. PREDNISONE [Suspect]
     Indication: CROHN^S DISEASE
  3. ESTROGEN NOS [Concomitant]
     Indication: PRODUCT USED FOR UNKNOWN INDICATION
     Dosage: DAILY
  4. VITAMIN B12 [Concomitant]
     Indication: PRODUCT USED FOR UNKNOWN INDICATION
     Route: 050

REACTIONS (5)
  - Bladder mass [Recovered/Resolved]
  - Bladder transitional cell carcinoma [Recovered/Resolved]
  - Crohn^s disease [Not Recovered/Not Resolved]
  - Candida infection [Unknown]
  - Vomiting [Unknown]
